FAERS Safety Report 24239002 (Version 1)
Quarter: 2024Q3

REPORT INFORMATION
  Report Type: Spontaneous
  Country: US (occurrence: US)
  Receive Date: 20240822
  Receipt Date: 20240822
  Transmission Date: 20241017
  Serious: No
  Sender: TEIKOKU
  Company Number: US-TPU-TPU-2024-00440

PATIENT
  Sex: Female
  Weight: 81.65 kg

DRUGS (6)
  1. LIDOCAINE [Suspect]
     Active Substance: LIDOCAINE
     Indication: Rheumatoid arthritis
  2. LIDOCAINE [Suspect]
     Active Substance: LIDOCAINE
     Indication: Fibromyalgia
  3. HUMIRA [Concomitant]
     Active Substance: ADALIMUMAB
  4. OXYCODONE [Concomitant]
     Active Substance: OXYCODONE
  5. NUVIGIL [Concomitant]
     Active Substance: ARMODAFINIL
  6. RITALIN [Concomitant]
     Active Substance: METHYLPHENIDATE HYDROCHLORIDE

REACTIONS (1)
  - Drug ineffective for unapproved indication [Unknown]
